FAERS Safety Report 9013772 (Version 2)
Quarter: 2014Q1

REPORT INFORMATION
  Report Type: Spontaneous
  Country: BD (occurrence: BD)
  Receive Date: 20130115
  Receipt Date: 20140127
  Transmission Date: 20141002
  Serious: Yes (Death, Hospitalization)
  Sender: FDA-Public Use
  Company Number: PHHY2013BD003110

PATIENT
  Age: 65 Year
  Sex: Female

DRUGS (1)
  1. EXELON PATCH [Suspect]
     Indication: DEMENTIA
     Dosage: 4.6 MG, (5 CM),DAILY
     Route: 062
     Dates: start: 200910

REACTIONS (3)
  - Cough [Fatal]
  - Diabetes mellitus [Fatal]
  - Hypertension [Fatal]
